FAERS Safety Report 8093257-X (Version None)
Quarter: 2012Q1

REPORT INFORMATION
  Report Type: 
  Country: None (occurrence: None)
  Receive Date: 20120128
  Receipt Date: 20111011
  Transmission Date: 20120608
  Serious: No
  Sender: FDA-Public Use
  Company Number: US-ABBOTT-11P-163-0722251-00

PATIENT
  Sex: Female
  Weight: 89.438 kg

DRUGS (5)
  1. MULTI-VITAMINS [Concomitant]
     Indication: PREGNANCY
  2. HUMIRA [Suspect]
     Dosage: 1 INJECTION ON DAY 29
     Route: 058
  3. HUMIRA [Suspect]
     Indication: CROHN'S DISEASE
     Dosage: 160 MG LOADING DOSE
     Route: 058
     Dates: start: 20110421, end: 20110421
  4. HUMIRA [Suspect]
     Dosage: 2 INJECTIONS ON DAY 16
     Route: 058
  5. HUMIRA [Suspect]
     Dosage: MAINTENANCE DOSE
     Route: 058

REACTIONS (5)
  - INJECTION SITE PAIN [None]
  - INCORRECT DOSE ADMINISTERED BY DEVICE [None]
  - DIARRHOEA [None]
  - INJECTION SITE HAEMATOMA [None]
  - DRUG EFFECT DECREASED [None]
